FAERS Safety Report 18812388 (Version 1)
Quarter: 2021Q1

REPORT INFORMATION
  Report Type: Spontaneous
  Country: MX (occurrence: MX)
  Receive Date: 20210130
  Receipt Date: 20210130
  Transmission Date: 20210419
  Serious: Yes (Hospitalization, Other)
  Sender: FDA-Public Use
  Company Number: MX-UCBSA-2021004243

PATIENT
  Age: 27 Year
  Sex: Female

DRUGS (8)
  1. FLUOXETINE [Suspect]
     Active Substance: FLUOXETINE HYDROCHLORIDE
     Indication: SEIZURE
  2. ESCITALOPRAM [Suspect]
     Active Substance: ESCITALOPRAM OXALATE
     Indication: SEIZURE
  3. LACOSAMIDE. [Suspect]
     Active Substance: LACOSAMIDE
     Indication: SEIZURE
     Dosage: 300 MILLIGRAM, 2X/DAY (BID)
  4. PHENYTOIN. [Suspect]
     Active Substance: PHENYTOIN
     Dosage: IV LOAD OF 1250 MILLIGRAM
  5. DIAZEPAM. [Suspect]
     Active Substance: DIAZEPAM
     Indication: SEIZURE
     Dosage: 5 MILLIGRAM, 2X/DAY (BID)
  6. LEVETIRACETAM. [Suspect]
     Active Substance: LEVETIRACETAM
     Indication: SEIZURE
     Dosage: 2 GRAM, 2X/DAY (BID)
  7. TOPIRAMATE. [Suspect]
     Active Substance: TOPIRAMATE
     Indication: SEIZURE
     Dosage: 300 MILLIGRAM, 2X/DAY (BID)
  8. PHENYTOIN. [Suspect]
     Active Substance: PHENYTOIN
     Indication: SEIZURE
     Dosage: UNKNOWN

REACTIONS (6)
  - Status epilepticus [Unknown]
  - Multiple-drug resistance [Unknown]
  - Product use issue [Unknown]
  - Partial seizures [Unknown]
  - Seizure [Unknown]
  - Overdose [Unknown]
